FAERS Safety Report 14320192 (Version 2)
Quarter: 2018Q1

REPORT INFORMATION
  Report Type: Spontaneous
  Country: US (occurrence: US)
  Receive Date: 20171222
  Receipt Date: 20180119
  Transmission Date: 20180509
  Serious: No
  Sender: FDA-Public Use
  Company Number: US-GLAXOSMITHKLINE-US2017194021

PATIENT
  Age: 60 Year
  Sex: Female

DRUGS (1)
  1. ABREVA [Suspect]
     Active Substance: DOCOSANOL
     Indication: ORAL HERPES
     Dosage: 2-3 TIMES A DAY AND THEN 3-4 TIMES
     Dates: start: 20171201, end: 201712

REACTIONS (8)
  - Application site scar [Unknown]
  - Oral herpes [Unknown]
  - Product quality issue [Unknown]
  - Condition aggravated [Unknown]
  - Oral discomfort [Unknown]
  - Application site pain [Unknown]
  - Inappropriate schedule of drug administration [Unknown]
  - Application site swelling [Unknown]

NARRATIVE: CASE EVENT DATE: 20171201
